FAERS Safety Report 8249892-9 (Version None)
Quarter: 2012Q2

REPORT INFORMATION
  Report Type: 
  Country: None (occurrence: None)
  Receive Date: 20120402
  Receipt Date: 20120323
  Transmission Date: 20120825
  Serious: Yes (Other)
  Sender: FDA-Public Use
  Company Number: PHHY2012DE025841

PATIENT
  Sex: Male

DRUGS (1)
  1. VALSARTAN [Suspect]
     Dates: start: 20110101

REACTIONS (2)
  - SUBCUTANEOUS ABSCESS [None]
  - ACNE [None]
